FAERS Safety Report 4324639-7 (Version None)
Quarter: 2004Q1

REPORT INFORMATION
  Report Type: 
  Country: None (occurrence: None)
  Receive Date: 20040322
  Receipt Date: 20040308
  Transmission Date: 20041129
  Serious: Yes (Death)
  Sender: FDA-Public Use
  Company Number: BR-JNJFOC-20040301631

PATIENT
  Age: 62 Year
  Sex: Male

DRUGS (1)
  1. LEUSTATIN [Suspect]
     Indication: CASTLEMAN'S DISEASE
     Dosage: 0.1 MG/KG, 1 IN 1 DAY, INJECTION
     Dates: start: 20000101, end: 20001001

REACTIONS (8)
  - BLOOD ALBUMIN DECREASED [None]
  - HAEMOGLOBIN DECREASED [None]
  - HEPATOMEGALY [None]
  - HERPES VIRUS INFECTION [None]
  - NON-HODGKIN'S LYMPHOMA REFRACTORY [None]
  - REFUSAL OF TREATMENT BY PATIENT [None]
  - SEPSIS [None]
  - WHITE BLOOD CELL COUNT DECREASED [None]
